FAERS Safety Report 18192773 (Version 1)
Quarter: 2020Q3

REPORT INFORMATION
  Report Type: Spontaneous
  Country: US (occurrence: US)
  Receive Date: 20200825
  Receipt Date: 20200825
  Transmission Date: 20201103
  Serious: Yes (Hospitalization, Other)
  Sender: FDA-Public Use
  Company Number: US-ELI_LILLY_AND_COMPANY-US202008005732

PATIENT
  Age: 61 Year
  Sex: Male

DRUGS (3)
  1. NOVOLOG [Concomitant]
     Active Substance: INSULIN ASPART
     Indication: TYPE 2 DIABETES MELLITUS
     Dosage: 30 U, EACH MORNING (IN AM)
  2. NOVOLOG [Concomitant]
     Active Substance: INSULIN ASPART
     Dosage: 26 U, EACH EVENING (PM)
  3. HUMALOG [Suspect]
     Active Substance: INSULIN LISPRO
     Indication: TYPE 2 DIABETES MELLITUS
     Dosage: UNK UNK, PRN
     Route: 058
     Dates: start: 2010

REACTIONS (7)
  - Post procedural haemorrhage [Unknown]
  - Blood glucose decreased [Recovered/Resolved]
  - Prostate cancer stage I [Unknown]
  - Myocardial infarction [Unknown]
  - Limb discomfort [Unknown]
  - Wrong patient received product [Unknown]
  - Myocardial infarction [Unknown]

NARRATIVE: CASE EVENT DATE: 2010
